FAERS Safety Report 13802099 (Version 1)
Quarter: 2017Q3

REPORT INFORMATION
  Report Type: Spontaneous
  Country: US (occurrence: US)
  Receive Date: 20170727
  Receipt Date: 20170727
  Transmission Date: 20171127
  Serious: Yes (Other)
  Sender: FDA-Public Use
  Company Number: None

PATIENT
  Age: 69 Year
  Sex: Male
  Weight: 81 kg

DRUGS (13)
  1. LIPITOR [Concomitant]
     Active Substance: ATORVASTATIN CALCIUM
  2. COREG [Concomitant]
     Active Substance: CARVEDILOL
  3. ATIVAN [Concomitant]
     Active Substance: LORAZEPAM
  4. CHONDROITIN [Concomitant]
     Active Substance: CHONDROITIN
  5. REMERON [Concomitant]
     Active Substance: MIRTAZAPINE
  6. ZETIA [Concomitant]
     Active Substance: EZETIMIBE
  7. VITAMINS [Concomitant]
     Active Substance: VITAMINS
  8. VIIBRYD [Concomitant]
     Active Substance: VILAZODONE HYDROCHLORIDE
  9. TRAZODONE [Concomitant]
     Active Substance: TRAZODONE HYDROCHLORIDE
  10. ALTASE [Concomitant]
  11. RESERVETROL [Concomitant]
  12. FISH OIL [Concomitant]
     Active Substance: FISH OIL
  13. MIRTAZAPINE. [Suspect]
     Active Substance: MIRTAZAPINE
     Indication: DEPRESSION
     Dosage: ?          QUANTITY:1 TABLET(S);?AT BEDTIME ORAL
     Route: 048
     Dates: start: 20160101, end: 20170727

REACTIONS (1)
  - Sinusitis [None]

NARRATIVE: CASE EVENT DATE: 20160101
